FAERS Safety Report 12904315 (Version 1)
Quarter: 2016Q4

REPORT INFORMATION
  Report Type: Spontaneous
  Country: US (occurrence: US)
  Receive Date: 20161101
  Receipt Date: 20161101
  Transmission Date: 20170207
  Serious: Yes (Hospitalization)
  Sender: FDA-Public Use
  Company Number: None

PATIENT
  Age: 47 Year
  Sex: Male
  Weight: 130.5 kg

DRUGS (14)
  1. SULFAMETHOXAZOLE [Concomitant]
     Active Substance: SULFAMETHOXAZOLE
  2. THIAMINE. [Concomitant]
     Active Substance: THIAMINE
  3. DACLATASVIR 60 MG BRISTOL-MYERS SQUIBB [Suspect]
     Active Substance: DACLATASVIR
     Indication: HEPATITIS C
     Route: 048
     Dates: start: 20160405, end: 20160722
  4. OMEPRAZOLE. [Concomitant]
     Active Substance: OMEPRAZOLE
  5. NADOLOL. [Concomitant]
     Active Substance: NADOLOL
  6. DULCOLAX NOS [Concomitant]
     Active Substance: BISACODYL OR DOCUSATE SODIUM
  7. IBPROFEN [Concomitant]
  8. DOCUSATE SODIUM. [Concomitant]
     Active Substance: DOCUSATE SODIUM
  9. PSYLLIUM [Concomitant]
     Active Substance: PLANTAGO SEED
  10. METHADONE [Concomitant]
     Active Substance: METHADONE HYDROCHLORIDE
  11. SOFOSBUVIR 400 MG GILEAD [Suspect]
     Active Substance: SOFOSBUVIR
     Indication: HEPATITIS C
     Route: 048
     Dates: start: 20160405, end: 20160722
  12. RIBAVIRIN. [Concomitant]
     Active Substance: RIBAVIRIN
  13. LACTULOSE. [Concomitant]
     Active Substance: LACTULOSE
  14. TRAZODONE [Concomitant]
     Active Substance: TRAZODONE HYDROCHLORIDE

REACTIONS (1)
  - Wernicke^s encephalopathy [None]

NARRATIVE: CASE EVENT DATE: 20160715
